FAERS Safety Report 7497850-4 (Version None)
Quarter: 2011Q2

REPORT INFORMATION
  Report Type: 
  Country: None (occurrence: None)
  Receive Date: 20110524
  Receipt Date: 20080917
  Transmission Date: 20111010
  Serious: Yes (Death, Hospitalization)
  Sender: FDA-Public Use
  Company Number: US-BAYER-200833848NA

PATIENT
  Age: 62 Year
  Sex: Male
  Weight: 77 kg

DRUGS (6)
  1. HEPARIN [Concomitant]
     Dosage: 50,000
  2. PROTAMINE SULFATE [Concomitant]
     Dosage: 750 MG
  3. TRASYLOL [Suspect]
     Indication: VENTRICULAR ASSIST DEVICE INSERTION
  4. TRASYLOL [Suspect]
     Indication: CORONARY ARTERY BYPASS
     Dosage: TEST DOSE OF 1 ML
     Route: 042
     Dates: start: 20060821, end: 20060821
  5. INSULIN [Concomitant]
     Dosage: 2 UNITS
  6. RED BLOOD CELLS [Concomitant]
     Dosage: 4 UNITS
     Dates: start: 20060821

REACTIONS (8)
  - RENAL FAILURE [None]
  - INJURY [None]
  - PAIN [None]
  - UNEVALUABLE EVENT [None]
  - MYOCARDIAL INFARCTION [None]
  - EMOTIONAL DISTRESS [None]
  - ANHEDONIA [None]
  - ANXIETY [None]
